FAERS Safety Report 8973999 (Version 1)
Quarter: 2012Q4

REPORT INFORMATION
  Report Type: 
  Country: US (occurrence: US)
  Receive Date: 20121218
  Receipt Date: 20121218
  Transmission Date: 20130627
  Serious: No
  Sender: FDA-Public Use
  Company Number: US-BRISTOL-MYERS SQUIBB COMPANY-16837726

PATIENT
  Age: 13 Year
  Sex: Female

DRUGS (3)
  1. ABILIFY [Suspect]
     Indication: ANGER
  2. ABILIFY [Suspect]
     Indication: CONVULSION
  3. ABILIFY [Suspect]
     Indication: SCREAMING

REACTIONS (1)
  - Dizziness [Unknown]
